FAERS Safety Report 17574708 (Version 6)
Quarter: 2020Q3

REPORT INFORMATION
  Report Type: Report from Study
  Country: None (occurrence: US)
  Receive Date: 20200324
  Receipt Date: 20200930
  Transmission Date: 20201102
  Serious: Yes (Hospitalization, Other)
  Sender: FDA-Public Use
  Company Number: US-ABBVIE-20K-163-3333313-00

PATIENT
  Age: 58 Year
  Sex: Male
  Weight: 77.18 kg

DRUGS (5)
  1. LISINOPRIL. [Concomitant]
     Active Substance: LISINOPRIL
     Indication: BLOOD PRESSURE MEASUREMENT
  2. WELLBUTRIN [Concomitant]
     Active Substance: BUPROPION HYDROCHLORIDE
     Indication: DEPRESSION
  3. HUMIRA [Suspect]
     Active Substance: ADALIMUMAB
     Indication: COLITIS ULCERATIVE
     Route: 058
     Dates: start: 2018
  4. ZOCOR [Concomitant]
     Active Substance: SIMVASTATIN
     Indication: CEREBROVASCULAR ACCIDENT
  5. HUMIRA [Suspect]
     Active Substance: ADALIMUMAB
     Indication: CROHN^S DISEASE
     Route: 058
     Dates: start: 2016, end: 20171110

REACTIONS (14)
  - Road traffic accident [Unknown]
  - Drug ineffective [Not Recovered/Not Resolved]
  - Thrombosis [Recovered/Resolved]
  - Hip surgery [Recovered/Resolved]
  - Pelvic bone injury [Recovered/Resolved]
  - Knee arthroplasty [Not Recovered/Not Resolved]
  - Arthralgia [Recovering/Resolving]
  - Nausea [Unknown]
  - Fracture [Recovered/Resolved]
  - Tendon disorder [Not Recovered/Not Resolved]
  - Frequent bowel movements [Recovered/Resolved]
  - Diverticulitis [Unknown]
  - Large intestine polyp [Unknown]
  - Joint injury [Unknown]

NARRATIVE: CASE EVENT DATE: 201711
